FAERS Safety Report 23925380 (Version 4)
Quarter: 2024Q2

REPORT INFORMATION
  Report Type: Report from Study
  Country: CA (occurrence: CA)
  Receive Date: 20240531
  Receipt Date: 20240627
  Transmission Date: 20240716
  Serious: Yes (Hospitalization, Other)
  Sender: FDA-Public Use
  Company Number: CA-BEH-2024172761

PATIENT
  Age: 73 Year
  Sex: Male
  Weight: 79.365 kg

DRUGS (4)
  1. HAEMATE P [Suspect]
     Active Substance: ANTIHEMOPHILIC FACTOR HUMAN
     Indication: Von Willebrand^s disease
     Dosage: 2000 IU, MONDAY, WEDNESDAY AND FRIDAY
     Route: 042
     Dates: start: 20240517
  2. HAEMATE P [Suspect]
     Active Substance: ANTIHEMOPHILIC FACTOR HUMAN
     Dosage: 2000 IU, QW
     Route: 042
     Dates: start: 20240517
  3. HAEMATE P [Suspect]
     Active Substance: ANTIHEMOPHILIC FACTOR HUMAN
     Dosage: UNK
     Route: 042
     Dates: start: 20240527
  4. HAEMATE P [Suspect]
     Active Substance: ANTIHEMOPHILIC FACTOR HUMAN
     Dosage: UNK
     Route: 065
     Dates: start: 20240614

REACTIONS (8)
  - Hospitalisation [Unknown]
  - Therapy interrupted [Unknown]
  - General physical condition abnormal [Unknown]
  - Poor venous access [Recovered/Resolved with Sequelae]
  - Wrong technique in product usage process [Unknown]
  - Atrial appendage closure [Unknown]
  - Sleep disorder [Unknown]
  - Catheter site haemorrhage [Unknown]

NARRATIVE: CASE EVENT DATE: 20240520
